FAERS Safety Report 25628533 (Version 1)
Quarter: 2025Q3

REPORT INFORMATION
  Report Type: Spontaneous
  Country: US (occurrence: US)
  Receive Date: 20250731
  Receipt Date: 20250731
  Transmission Date: 20251021
  Serious: Yes (Other)
  Sender: BLUEPRINT MEDICINES
  Company Number: US-Blueprint Medicines Corporation-2025-AER-01619

PATIENT
  Age: 44 Year
  Sex: Female

DRUGS (2)
  1. AYVAKIT [Suspect]
     Active Substance: AVAPRITINIB
     Indication: Mast cell activation syndrome
     Route: 065
     Dates: start: 20250425
  2. AYVAKIT [Suspect]
     Active Substance: AVAPRITINIB
     Indication: Hereditary alpha tryptasaemia

REACTIONS (9)
  - Heavy menstrual bleeding [Unknown]
  - Cushing^s syndrome [Unknown]
  - Attention deficit hyperactivity disorder [Unknown]
  - Hypotension [Unknown]
  - Gastrointestinal disorder [Unknown]
  - Condition aggravated [Unknown]
  - Flushing [Unknown]
  - White blood cell count increased [Unknown]
  - Histamine level increased [Unknown]
